FAERS Safety Report 17458431 (Version 1)
Quarter: 2020Q1

REPORT INFORMATION
  Report Type: Spontaneous
  Country: CA (occurrence: CA)
  Receive Date: 20200225
  Receipt Date: 20200225
  Transmission Date: 20200409
  Serious: Yes (Other)
  Sender: FDA-Public Use
  Company Number: CA-009507513-2002CAN009080

PATIENT
  Age: 32 Year
  Sex: Male

DRUGS (14)
  1. XOLAIR [Suspect]
     Active Substance: OMALIZUMAB
     Dosage: 300 MILLIGRAM, 1 EVERY 2 WEEK
     Route: 058
  2. SPIRIVA [Concomitant]
     Active Substance: TIOTROPIUM BROMIDE MONOHYDRATE
  3. XOLAIR [Suspect]
     Active Substance: OMALIZUMAB
     Indication: ASTHMA
     Dosage: 300 MILLIGRAM, 1 EVERY 2 WEEKS
     Route: 058
  4. XOLAIR [Suspect]
     Active Substance: OMALIZUMAB
     Dosage: UNK
     Route: 058
  5. XOLAIR [Suspect]
     Active Substance: OMALIZUMAB
     Dosage: 300 MILLIGRAM, 1 EVERY 2 WEEK
     Route: 058
  6. EPIPEN [Concomitant]
     Active Substance: EPINEPHRINE
  7. VENLAFAXINE HYDROCHLORIDE. [Concomitant]
     Active Substance: VENLAFAXINE HYDROCHLORIDE
  8. SINGULAIR [Suspect]
     Active Substance: MONTELUKAST SODIUM
     Indication: PRODUCT USED FOR UNKNOWN INDICATION
     Dosage: 1 DOSAGE FORM, 1 EVERY 1 DAYS
     Route: 048
  9. PREDNISONE. [Concomitant]
     Active Substance: PREDNISONE
  10. VENTOLIN [Concomitant]
     Active Substance: ALBUTEROL SULFATE
  11. XOLAIR [Suspect]
     Active Substance: OMALIZUMAB
     Dosage: UNK
     Route: 058
  12. ALVESCO [Concomitant]
     Active Substance: CICLESONIDE
  13. CYCLOBENZAPRINE HYDROCHLORIDE. [Concomitant]
     Active Substance: CYCLOBENZAPRINE HYDROCHLORIDE
  14. PROTOPIC [Concomitant]
     Active Substance: TACROLIMUS
     Dosage: DOSAGE FORM: OINTMENT TOPICAL

REACTIONS (9)
  - Total lung capacity [Not Recovered/Not Resolved]
  - Inappropriate schedule of product administration [Not Recovered/Not Resolved]
  - Heart rate increased [Not Recovered/Not Resolved]
  - Hypersensitivity [Not Recovered/Not Resolved]
  - Nasopharyngitis [Not Recovered/Not Resolved]
  - Urticaria [Not Recovered/Not Resolved]
  - Blood pressure increased [Not Recovered/Not Resolved]
  - Asthma [Not Recovered/Not Resolved]
  - Dyspnoea [Not Recovered/Not Resolved]
